FAERS Safety Report 11429896 (Version 1)
Quarter: 2015Q3

REPORT INFORMATION
  Report Type: Spontaneous
  Country: US (occurrence: US)
  Receive Date: 20150828
  Receipt Date: 20150828
  Transmission Date: 20151125
  Serious: No
  Sender: FDA-Public Use
  Company Number: US-ASTRAZENECA-2015SE80020

PATIENT
  Age: 71 Year
  Sex: Female

DRUGS (3)
  1. MOVANTIK [Suspect]
     Active Substance: NALOXEGOL OXALATE
     Indication: CONSTIPATION
     Dosage: DAILY
     Route: 048
  2. MORPHINE [Concomitant]
     Active Substance: MORPHINE
     Indication: OSTEOPOROSIS
     Route: 065
  3. MORPHINE [Concomitant]
     Active Substance: MORPHINE
     Indication: BACK INJURY
     Route: 065

REACTIONS (3)
  - Chest pain [Unknown]
  - Troponin increased [Unknown]
  - Infrequent bowel movements [Unknown]
